FAERS Safety Report 14436336 (Version 1)
Quarter: 2018Q1

REPORT INFORMATION
  Report Type: Spontaneous
  Country: US (occurrence: US)
  Receive Date: 20180124
  Receipt Date: 20180124
  Transmission Date: 20180509
  Serious: Yes (Other)
  Sender: FDA-Public Use
  Company Number: None

PATIENT
  Age: 62 Year
  Sex: Female
  Weight: 81 kg

DRUGS (8)
  1. SYNTHROID [Concomitant]
     Active Substance: LEVOTHYROXINE SODIUM
  2. FISH OIL [Concomitant]
     Active Substance: FISH OIL
  3. VITAMIN D [Concomitant]
     Active Substance: CHOLECALCIFEROL
  4. LISINOPRIL. [Concomitant]
     Active Substance: LISINOPRIL
  5. SINGULAIR [Concomitant]
     Active Substance: MONTELUKAST SODIUM
  6. MULTI VITAMIN [Concomitant]
     Active Substance: VITAMINS
  7. KDS LAB LIQUID STYPTIC [Suspect]
     Active Substance: ALCOHOL\LIDOCAINE HYDROCHLORIDE\ZINC CHLORIDE
     Indication: LIMB INJURY
     Dates: start: 20180106, end: 20180106
  8. THYROID MEDICATION [Concomitant]
     Active Substance: UNSPECIFIED INGREDIENT

REACTIONS (4)
  - Incorrect dose administered [None]
  - Skin necrosis [None]
  - Peripheral swelling [None]
  - Localised infection [None]

NARRATIVE: CASE EVENT DATE: 20180106
